FAERS Safety Report 18324910 (Version 2)
Quarter: 2020Q4

REPORT INFORMATION
  Report Type: Spontaneous
  Country: JP (occurrence: JP)
  Receive Date: 20200928
  Receipt Date: 20201015
  Transmission Date: 20210113
  Serious: Yes (Life-Threatening, Hospitalization)
  Sender: FDA-Public Use
  Company Number: JP-ELI_LILLY_AND_COMPANY-JP202009007451

PATIENT
  Age: 85 Year
  Sex: Female
  Weight: 40.2 kg

DRUGS (14)
  1. BAYASPIRIN [Concomitant]
     Active Substance: ASPIRIN
     Dosage: UNK, UNKNOWN
     Route: 065
  2. OLMESARTAN [Concomitant]
     Active Substance: OLMESARTAN
     Dosage: UNK, UNKNOWN
     Route: 065
  3. METILDIGOXIN [Concomitant]
     Active Substance: METILDIGOXIN
     Dosage: UNK, UNKNOWN
     Route: 065
  4. GRANISETRON [Concomitant]
     Active Substance: GRANISETRON
     Dosage: UNK, UNKNOWN
     Route: 065
     Dates: start: 20200916
  5. ABRAXANE [Suspect]
     Active Substance: PACLITAXEL
     Indication: GASTRIC CANCER
     Dosage: 100 MG, WEEKLY (1/W)
     Route: 042
     Dates: start: 20200819
  6. MERCAZOLE [THIAMAZOLE] [Concomitant]
     Active Substance: METHIMAZOLE
     Dosage: UNK, UNKNOWN
     Route: 065
  7. PROEMEND [Concomitant]
     Active Substance: FOSAPREPITANT
     Dosage: UNK, UNKNOWN
     Route: 065
     Dates: start: 20200916
  8. ONGLYZA [Concomitant]
     Active Substance: SAXAGLIPTIN HYDROCHLORIDE
     Dosage: UNK, UNKNOWN
     Route: 065
  9. CYRAMZA [Suspect]
     Active Substance: RAMUCIRUMAB
     Indication: GASTRIC CANCER
     Dosage: 250 MG, SINGLE
     Route: 042
     Dates: start: 20200916, end: 20200916
  10. VOGLIBOSE [Concomitant]
     Active Substance: VOGLIBOSE
     Dosage: UNK, UNKNOWN
     Route: 065
  11. SUGLAT [Concomitant]
     Active Substance: IPRAGLIFLOZIN L-PROLINE
     Dosage: UNK, UNKNOWN
     Route: 065
  12. AMLODIPINE [Concomitant]
     Active Substance: AMLODIPINE BESYLATE
     Dosage: UNK, UNKNOWN
     Route: 065
  13. POLARAMINE [Concomitant]
     Active Substance: DEXCHLORPHENIRAMINE MALEATE
     Dosage: UNK, UNKNOWN
     Route: 065
     Dates: start: 20200916
  14. ORGADRONE S [Concomitant]
     Dosage: UNK, UNKNOWN
     Route: 065
     Dates: start: 20200916

REACTIONS (1)
  - Infusion related reaction [Recovered/Resolved]

NARRATIVE: CASE EVENT DATE: 20200916
